FAERS Safety Report 15146986 (Version 3)
Quarter: 2018Q4

REPORT INFORMATION
  Report Type: Spontaneous
  Country: TR (occurrence: TR)
  Receive Date: 20180716
  Receipt Date: 20181203
  Transmission Date: 20190204
  Serious: Yes (Life-Threatening, Other)
  Sender: FDA-Public Use
  Company Number: TR-SUN PHARMACEUTICAL INDUSTRIES LTD-2018R1-177969

PATIENT
  Age: 8 Year
  Sex: Male

DRUGS (5)
  1. METHOTREXATE. [Suspect]
     Active Substance: METHOTREXATE
     Dosage: THIRD ADMINISTRATION OF METHOTREXATE
     Route: 065
  2. METHOTREXATE. [Suspect]
     Active Substance: METHOTREXATE
     Dosage: FIRST HR 2 BLOCK STARTED
     Route: 065
  3. METHOTREXATE. [Suspect]
     Active Substance: METHOTREXATE
     Dosage: 2 MG/KG/DAY
     Route: 065
  4. METHOTREXATE. [Suspect]
     Active Substance: METHOTREXATE
     Indication: ACUTE LYMPHOCYTIC LEUKAEMIA
     Dosage: 5 G/ M2 AT FIRST HR 1 BLOCK
     Route: 065
  5. CALCIUM FOLINATE [Concomitant]
     Active Substance: LEUCOVORIN CALCIUM
     Indication: PRODUCT USED FOR UNKNOWN INDICATION
     Dosage: 15 MG/M2 AT 42 HOUR, 48 HOUR AND 54 HOUR
     Route: 065

REACTIONS (5)
  - Toxic epidermal necrolysis [Recovered/Resolved]
  - Cardiac failure acute [Recovered/Resolved]
  - Gastrointestinal haemorrhage [Recovered/Resolved]
  - Hyperaemia [Recovered/Resolved]
  - Stevens-Johnson syndrome [Recovered/Resolved]
